FAERS Safety Report 7407116 (Version 2)
Quarter: 2013Q3

REPORT INFORMATION
  Report Type: Spontaneous
  Country: FR (occurrence: None)
  Receive Date: 20100526
  Receipt Date: 20130716
  Transmission Date: 20140515
  Serious: Yes (Disabling, Other)
  Sender: FDA-Public Use
  Company Number: FR-SEPTODONT-201000125

PATIENT
  Age: 72 Year
  Sex: Male

DRUGS (6)
  1. ARTICAINE HYDROCHLORIDE AND EPINEPHRINE [Suspect]
     Indication: LOCAL ANAESTHESIA
     Dosage: DENTAL
     Route: 004
     Dates: start: 20100323
  2. SOLPROL (BISOPROLOL) [Concomitant]
  3. AMLODIPINE [Concomitant]
  4. RENITEC (ENALAPRIL MALEATE) (5 MILLIGRAM, TABLETS) (ENALAPRIL MALEATE) [Concomitant]
  5. TIMOPTOL (TIMOLOL MALEATE) DORZOLAMIDE HCI/TIMOLOL MALEATE (DORZOLAMIDE HYDROCHLORIDE: TIMOLOL MALEATE) [Concomitant]
  6. DORZOLAMIDE HCL/TIMOLOL MALEATE (DORZOLAMIDE HYDROCHLORIDE; TIMOLOL MALEATE) [Concomitant]

REACTIONS (3)
  - Retinal vein thrombosis [None]
  - Blindness unilateral [None]
  - Amaurosis [None]
